FAERS Safety Report 10206775 (Version 1)
Quarter: 2014Q2

REPORT INFORMATION
  Report Type: Spontaneous
  Country: US (occurrence: None)
  Receive Date: 20140527
  Receipt Date: 20140527
  Transmission Date: 20141212
  Serious: No
  Sender: FDA-Public Use
  Company Number: None

PATIENT
  Age: 24 Year
  Sex: Female
  Weight: 58.97 kg

DRUGS (1)
  1. MONTELUKAST 10MG MYLAN [Suspect]
     Indication: ALLERGY TO ANIMAL
     Dosage: 90 PILLS FOR 90 DAYS?ONCE DAILY?TAKEN BY MOUTH
     Route: 048

REACTIONS (1)
  - Drug ineffective [None]
